FAERS Safety Report 4462588-4 (Version None)
Quarter: 2004Q3

REPORT INFORMATION
  Report Type: 
  Country: None (occurrence: None)
  Receive Date: 20040928
  Receipt Date: 20040915
  Transmission Date: 20050211
  Serious: Yes (Death)
  Sender: FDA-Public Use
  Company Number: 2004231977JP

PATIENT
  Age: 21 Year
  Sex: Male

DRUGS (1)
  1. HALCION [Suspect]
     Dosage: ORAL
     Route: 048

REACTIONS (6)
  - BLOOD CAFFEINE INCREASED [None]
  - COMPLETED SUICIDE [None]
  - FOREIGN BODY ASPIRATION [None]
  - INJURY ASPHYXIATION [None]
  - INTENTIONAL OVERDOSE [None]
  - RESPIRATORY DEPRESSION [None]
